FAERS Safety Report 4316496-X (Version None)
Quarter: 2004Q1

REPORT INFORMATION
  Report Type: 
  Country: None (occurrence: None)
  Receive Date: 20040311
  Receipt Date: 20040301
  Transmission Date: 20041129
  Serious: Yes (Other)
  Sender: FDA-Public Use
  Company Number: 000979

PATIENT
  Age: 29 Year
  Sex: Female

DRUGS (1)
  1. PLAN B (LEVONORGESTREL)  TABLET, 0.75 MG [Suspect]
     Indication: POST COITAL CONTRACEPTION
     Dosage: 0.75 MG ORAL
     Route: 048
     Dates: start: 20031201

REACTIONS (4)
  - ABORTION SPONTANEOUS [None]
  - COMPLICATIONS OF MATERNAL EXPOSURE TO THERAPEUTIC DRUGS [None]
  - MATERNAL DRUGS AFFECTING FOETUS [None]
  - PREGNANCY ON ORAL CONTRACEPTIVE [None]
